FAERS Safety Report 6729097-0 (Version None)
Quarter: 2010Q2

REPORT INFORMATION
  Report Type: 
  Country: None (occurrence: None)
  Receive Date: 20100517
  Receipt Date: 20100323
  Transmission Date: 20101027
  Serious: No
  Sender: FDA-Public Use
  Company Number: US-ABBOTT-10P-163-0634680-00

PATIENT
  Sex: Male
  Weight: 72.64 kg

DRUGS (9)
  1. SIMCOR [Suspect]
     Indication: HIGH DENSITY LIPOPROTEIN DECREASED
     Dosage: 1000/20 X 2 TABLETS EVERY NIGHT
     Dates: start: 20080402
  2. SIMCOR [Suspect]
     Indication: APOLIPOPROTEIN B INCREASED
  3. SIMCOR [Suspect]
     Indication: BLOOD CHOLESTEROL INCREASED
  4. REMURON [Concomitant]
     Indication: SLEEP DISORDER THERAPY
  5. KEPPRA [Concomitant]
     Indication: SLEEP DISORDER THERAPY
  6. PROSOM [Concomitant]
     Indication: SLEEP DISORDER THERAPY
  7. NEXIUM [Concomitant]
     Indication: GASTROOESOPHAGEAL REFLUX DISEASE
  8. ATIVAN [Concomitant]
     Indication: DRUG USE FOR UNKNOWN INDICATION
  9. LOVAZA [Concomitant]
     Indication: DRUG USE FOR UNKNOWN INDICATION

REACTIONS (1)
  - ERYTHEMA [None]
